FAERS Safety Report 23865649 (Version 1)
Quarter: 2024Q2

REPORT INFORMATION
  Report Type: Other
  Country: CN (occurrence: JP)
  Receive Date: 20240517
  Receipt Date: 20240517
  Transmission Date: 20240716
  Serious: Yes (Hospitalization)
  Sender: FDA-Public Use
  Company Number: JP-OrBion Pharmaceuticals Private Limited-2157121

PATIENT
  Age: 60 Year
  Sex: Male

DRUGS (1)
  1. DIVALPROEX SODIUM [Suspect]
     Active Substance: DIVALPROEX SODIUM
     Indication: Epilepsy
     Route: 065

REACTIONS (4)
  - Atelectasis [Recovered/Resolved]
  - Foreign body aspiration [Recovered/Resolved]
  - Sputum increased [Recovered/Resolved]
  - Respiratory failure [Recovered/Resolved]
